FAERS Safety Report 7962837-1 (Version None)
Quarter: 2011Q4

REPORT INFORMATION
  Report Type: 
  Country: None (occurrence: None)
  Receive Date: 20111207
  Receipt Date: 20111201
  Transmission Date: 20120403
  Serious: Yes (Hospitalization)
  Sender: FDA-Public Use
  Company Number: IT-PFIZER INC-2011058996

PATIENT
  Age: 44 Year
  Sex: Male

DRUGS (3)
  1. RAMIPRIL [Suspect]
     Dosage: UNK
     Route: 048
     Dates: start: 20100918, end: 20100918
  2. CHLORPROMAZINE [Suspect]
     Indication: ABNORMAL BEHAVIOUR
     Dosage: 25MG, UNK
     Route: 048
     Dates: start: 20100918, end: 20100918
  3. DAPAROX [Suspect]
     Indication: ABNORMAL BEHAVIOUR
     Dosage: 20MG, UNK
     Route: 048
     Dates: start: 20100918, end: 20100918

REACTIONS (5)
  - ATRIAL FIBRILLATION [None]
  - LACERATION [None]
  - HEAD INJURY [None]
  - DRUG ABUSE [None]
  - CONTUSION [None]
